FAERS Safety Report 7321843-0 (Version None)
Quarter: 2011Q1

REPORT INFORMATION
  Report Type: 
  Country: None (occurrence: None)
  Receive Date: 20110228
  Receipt Date: 20110225
  Transmission Date: 20110831
  Serious: Yes (Hospitalization, Other)
  Sender: FDA-Public Use
  Company Number: BR-PFIZER INC-2011015564

PATIENT
  Sex: Female
  Weight: 61 kg

DRUGS (2)
  1. TRAMAL [Suspect]
     Indication: PAIN
     Dosage: 200 MG, SINGLE
     Route: 048
     Dates: start: 20110118, end: 20110118
  2. CELEBREX [Suspect]
     Indication: PAIN
     Dosage: 200 MG, SINGLE
     Route: 048
     Dates: start: 20110118, end: 20110118

REACTIONS (9)
  - RETCHING [None]
  - HYPERHIDROSIS [None]
  - ABDOMINAL PAIN UPPER [None]
  - WEIGHT DECREASED [None]
  - NAUSEA [None]
  - TREMOR [None]
  - DEHYDRATION [None]
  - COLD SWEAT [None]
  - ASTHENIA [None]
